FAERS Safety Report 9313322 (Version 1)
Quarter: 2013Q2

REPORT INFORMATION
  Report Type: Spontaneous
  Country: US (occurrence: US)
  Receive Date: 20130528
  Receipt Date: 20130528
  Transmission Date: 20140414
  Serious: No
  Sender: FDA-Public Use
  Company Number: US-ABBOTT-13P-163-1066233-00

PATIENT
  Age: 47 Year
  Sex: Male

DRUGS (2)
  1. ANDROGEL [Suspect]
     Indication: BLOOD TESTOSTERONE DECREASED
     Dosage: 1 PUMP PER DAY
     Dates: start: 201301
  2. ANDROGEL [Suspect]
     Dosage: 2 PUMPS PER DAY
     Dates: start: 201302

REACTIONS (2)
  - Blood testosterone decreased [Not Recovered/Not Resolved]
  - Incorrect dose administered [Unknown]
